FAERS Safety Report 7065227 (Version 5)
Quarter: 2014Q1

REPORT INFORMATION
  Report Type: Spontaneous
  Country: US (occurrence: None)
  Receive Date: 20090720
  Receipt Date: 20140228
  Transmission Date: 20141002
  Serious: Yes (Hospitalization, Other)
  Sender: FDA-Public Use
  Company Number: JPI-P-007866

PATIENT
  Age: 54 Year
  Sex: Female
  Weight: 72.6 kg

DRUGS (21)
  1. XYREM [Suspect]
     Indication: CATAPLEXY
     Route: 048
     Dates: start: 200801, end: 2008
  2. XYREM [Suspect]
     Indication: NARCOLEPSY
     Route: 048
     Dates: start: 200801, end: 2008
  3. UNSPECIFIED INGREDIENT [Suspect]
     Indication: PRODUCT USED FOR UNKNOWN INDICATION
  4. CORTISONE ACETATE [Suspect]
     Indication: BACK PAIN
     Dosage: 1DF, QOW, PARENTERAL
     Dates: start: 20110420, end: 20110717
  5. HYDROCODONE AND ASPIRIN [Concomitant]
  6. BENAZEPRIL [Concomitant]
  7. AMLODIPINE [Concomitant]
  8. BUPROPION HYDROCHLORIDE SUSTAINED RELEASE [Concomitant]
  9. FLUOXETINE [Concomitant]
  10. CETIRIZINE HYDROCHLORIDE [Concomitant]
  11. LEVOTHYROXINE [Concomitant]
  12. CLONAZEPAM [Concomitant]
  13. SINEMET CARBIDOPA-LEVODOPA [Concomitant]
  14. DEPO-ESTRADIOL [Concomitant]
  15. CELECOXIB [Concomitant]
  16. MORPHINE [Concomitant]
  17. VICODIN HYDROCODONE WITH ACETAMINOPHEN [Concomitant]
  18. ALBUTEROL [Concomitant]
  19. CITALOPRAM HYDROBROMIDE [Concomitant]
  20. MELOXICAM [Concomitant]
  21. THYROID 50 [Concomitant]

REACTIONS (26)
  - Increased appetite [None]
  - Weight increased [None]
  - Poor quality sleep [None]
  - Abnormal dreams [None]
  - Sleep paralysis [None]
  - Cushing^s syndrome [None]
  - Adrenal insufficiency [None]
  - Iron deficiency [None]
  - Glossitis [None]
  - Swollen tongue [None]
  - Glossodynia [None]
  - Tooth abscess [None]
  - Spinal cord disorder [None]
  - Sleep terror [None]
  - Incoherent [None]
  - Speech disorder [None]
  - Device issue [None]
  - Surgical failure [None]
  - Accidental overdose [None]
  - Intervertebral disc protrusion [None]
  - Intervertebral disc disorder [None]
  - Bladder spasm [None]
  - Night sweats [None]
  - Sleep talking [None]
  - Somnambulism [None]
  - Pain in extremity [None]
